FAERS Safety Report 14861584 (Version 1)
Quarter: 2018Q2

REPORT INFORMATION
  Report Type: Spontaneous
  Country: US (occurrence: US)
  Receive Date: 20180508
  Receipt Date: 20180508
  Transmission Date: 20180711
  Serious: No
  Sender: FDA-Public Use
  Company Number: US-PERRIGO-18US004223

PATIENT
  Sex: Female
  Weight: 70.75 kg

DRUGS (4)
  1. PROTONIX                           /00661201/ [Concomitant]
     Active Substance: OMEPRAZOLE
     Indication: PRODUCT USED FOR UNKNOWN INDICATION
     Dosage: UNK
     Route: 048
  2. PERMETHRIN. [Suspect]
     Active Substance: PERMETHRIN
     Indication: ROSACEA
     Dosage: UNKNOWN, BID
     Route: 061
  3. LEVOXYL [Concomitant]
     Active Substance: LEVOTHYROXINE SODIUM
     Indication: PRODUCT USED FOR UNKNOWN INDICATION
     Dosage: UNK
     Route: 048
  4. LORAZEPAM. [Concomitant]
     Active Substance: LORAZEPAM
     Indication: ANXIETY
     Dosage: UNK, PRN
     Route: 048

REACTIONS (4)
  - Gastrointestinal pain [Recovered/Resolved]
  - Drug ineffective for unapproved indication [Unknown]
  - Eye irritation [Recovered/Resolved]
  - Paraesthesia [Recovered/Resolved]
